FAERS Safety Report 10190976 (Version 2)
Quarter: 2014Q2

REPORT INFORMATION
  Report Type: Spontaneous
  Country: JP (occurrence: JP)
  Receive Date: 20140523
  Receipt Date: 20140624
  Transmission Date: 20141212
  Serious: Yes (Hospitalization)
  Sender: FDA-Public Use
  Company Number: JP-JNJFOC-20140507005

PATIENT
  Age: 48 Year
  Sex: Female

DRUGS (6)
  1. XEPLION [Suspect]
     Indication: PRODUCT USED FOR UNKNOWN INDICATION
     Route: 030
  2. LONASEN [Concomitant]
     Route: 048
  3. PHENOBARBITAL [Concomitant]
     Route: 048
  4. TEGRETOL [Concomitant]
     Route: 048
  5. VEGETAMIN-A [Concomitant]
     Route: 048
  6. AKINETON [Concomitant]
     Route: 048

REACTIONS (1)
  - Gastric cancer [Unknown]
